FAERS Safety Report 9342767 (Version 1)
Quarter: 2013Q2

REPORT INFORMATION
  Report Type: Spontaneous
  Country: US (occurrence: US)
  Receive Date: 20130611
  Receipt Date: 20130611
  Transmission Date: 20140414
  Serious: Yes (Other)
  Sender: FDA-Public Use
  Company Number: US-GLAXOSMITHKLINE-A0790613A

PATIENT
  Age: 63 Year
  Sex: Female
  Weight: 115 kg

DRUGS (1)
  1. AVANDIA [Suspect]
     Indication: DIABETES MELLITUS
     Dosage: 8MG UNKNOWN
     Route: 048
     Dates: start: 20060101, end: 20080101

REACTIONS (3)
  - Eye disorder [Not Recovered/Not Resolved]
  - Diabetic retinopathy [Unknown]
  - Macular oedema [Unknown]
